FAERS Safety Report 5486150-X (Version None)
Quarter: 2007Q4

REPORT INFORMATION
  Report Type: 
  Country: None (occurrence: None)
  Receive Date: 20071015
  Receipt Date: 20071003
  Transmission Date: 20080405
  Serious: Yes (Other)
  Sender: FDA-Public Use
  Company Number: ES-PFIZER INC-2007066698

PATIENT
  Sex: Female
  Weight: 51 kg

DRUGS (3)
  1. LYRICA [Suspect]
     Indication: NEURALGIA
     Dosage: DAILY DOSE:300MG
     Route: 048
  2. CYMBALTA [Interacting]
     Indication: DEPRESSION
     Dosage: DAILY DOSE:30MG
     Route: 048
  3. ATARAX [Concomitant]
     Route: 048

REACTIONS (5)
  - AGGRESSION [None]
  - DRUG INTERACTION [None]
  - PERSONALITY DISORDER [None]
  - SEXUAL DYSFUNCTION [None]
  - TREMOR [None]
